FAERS Safety Report 14253521 (Version 1)
Quarter: 2017Q4

REPORT INFORMATION
  Report Type: Spontaneous
  Country: US (occurrence: US)
  Receive Date: 20171205
  Receipt Date: 20171205
  Transmission Date: 20180321
  Serious: Yes (Hospitalization)
  Sender: FDA-Public Use
  Company Number: US-CELGENEUS-USA-20171200173

PATIENT
  Age: 90 Year
  Sex: Female

DRUGS (1)
  1. REVLIMID [Suspect]
     Active Substance: LENALIDOMIDE
     Indication: PLASMA CELL MYELOMA
     Dosage: 5 MILLIGRAM
     Route: 048
     Dates: start: 20170826

REACTIONS (5)
  - Dyspnoea [Unknown]
  - Vomiting [Unknown]
  - Hypotension [Unknown]
  - Heart rate increased [Unknown]
  - Pneumonia [Unknown]

NARRATIVE: CASE EVENT DATE: 20171129
